FAERS Safety Report 4279839-1 (Version None)
Quarter: 2004Q1

REPORT INFORMATION
  Report Type: 
  Country: None (occurrence: None)
  Receive Date: 20040122
  Receipt Date: 20040120
  Transmission Date: 20041129
  Serious: Yes (Other)
  Sender: FDA-Public Use
  Company Number: 200310573BFR

PATIENT
  Age: 38 Year
  Sex: Male

DRUGS (4)
  1. IZILOX (MOXIFLOXACIN HYDROCHLORIDE) [Suspect]
     Indication: BACILLUS INFECTION
     Dosage: 400 MG TOTAL DAILY ORAL
     Route: 048
     Dates: start: 20031103
  2. IZILOX (MOXIFLOXACIN HYDROCHLORIDE) [Suspect]
     Indication: EYE INFECTION
     Dosage: 400 MG TOTAL DAILY ORAL
     Route: 048
     Dates: start: 20031103
  3. TOPALGIC [Concomitant]
  4. DI-ANTALVIC [Concomitant]

REACTIONS (13)
  - ABDOMINAL PAIN [None]
  - BACK PAIN [None]
  - C-REACTIVE PROTEIN INCREASED [None]
  - DIFFICULTY IN WALKING [None]
  - DROOLING [None]
  - DRY MOUTH [None]
  - DYSGEUSIA [None]
  - DYSPHAGIA [None]
  - LEUKOCYTOSIS [None]
  - PAIN IN EXTREMITY [None]
  - PANIC ATTACK [None]
  - PAROSMIA [None]
  - THROMBOCYTHAEMIA [None]
